FAERS Safety Report 5157308-4 (Version None)
Quarter: 2006Q4

REPORT INFORMATION
  Report Type: 
  Country: None (occurrence: None)
  Receive Date: 20061127
  Receipt Date: 20061113
  Transmission Date: 20070319
  Serious: Yes (Hospitalization)
  Sender: FDA-Public Use
  Company Number: PHBS2006RU17773

PATIENT
  Age: 72 Year
  Sex: Male

DRUGS (3)
  1. ZOMETA [Suspect]
     Indication: PROSTATE CANCER
     Dosage: 4 MG, ONCE/SINGLE
     Route: 042
  2. CASODEX W/ZOLADEX [Concomitant]
     Route: 065
  3. ALCOHOL [Concomitant]
     Dosage: 50 ML/D
     Route: 048

REACTIONS (2)
  - CHEST PAIN [None]
  - MYOCARDIAL ISCHAEMIA [None]
